FAERS Safety Report 21314188 (Version 1)
Quarter: 2022Q3

REPORT INFORMATION
  Report Type: Spontaneous
  Country: US (occurrence: US)
  Receive Date: 20220909
  Receipt Date: 20220909
  Transmission Date: 20221026
  Serious: Yes (Hospitalization, Other)
  Sender: FDA-Public Use
  Company Number: US-TAKEDA-2022TUS062565

PATIENT
  Age: 29 Year
  Sex: Male

DRUGS (11)
  1. ADDERALL XR [Suspect]
     Active Substance: AMPHETAMINE ASPARTATE\AMPHETAMINE SULFATE\DEXTROAMPHETAMINE SACCHARATE\DEXTROAMPHETAMINE SULFATE
     Indication: Attention deficit hyperactivity disorder
     Dosage: 90 MILLIGRAM, QD
     Route: 065
  2. CLONIDINE [Concomitant]
     Active Substance: CLONIDINE
     Indication: Attention deficit hyperactivity disorder
     Dosage: 0.1 MILLIGRAM, QD
     Route: 065
  3. OLANZAPINE [Concomitant]
     Active Substance: OLANZAPINE
     Indication: Psychotic disorder
     Dosage: UNK
  4. RISPERIDONE [Concomitant]
     Active Substance: RISPERIDONE
     Indication: Psychotic disorder
     Dosage: 1 MILLIGRAM, BID
     Route: 048
  5. HALOPERIDOL [Concomitant]
     Active Substance: HALOPERIDOL
     Indication: Agitation
     Dosage: 5 MILLIGRAM
     Route: 048
  6. DIPHENHYDRAMINE [Concomitant]
     Active Substance: DIPHENHYDRAMINE
     Indication: Agitation
     Dosage: 50 MILLIGRAM
     Route: 065
  7. LORAZEPAM [Concomitant]
     Active Substance: LORAZEPAM
     Indication: Agitation
     Dosage: 2 MILLIGRAM
     Route: 065
  8. HALDOL DECANOATE [Concomitant]
     Active Substance: HALOPERIDOL DECANOATE
     Dosage: 50 MILLIGRAM
     Route: 030
  9. HALDOL DECANOATE [Concomitant]
     Active Substance: HALOPERIDOL DECANOATE
     Dosage: 100 MILLIGRAM
     Route: 030
  10. MIDAZOLAM [Concomitant]
     Active Substance: MIDAZOLAM
     Dosage: 10 MILLIGRAM
     Route: 065
  11. HALOPERIDOL DECANOATE [Concomitant]
     Active Substance: HALOPERIDOL DECANOATE
     Dosage: UNK

REACTIONS (2)
  - Drug abuse [Unknown]
  - Substance-induced psychotic disorder [Unknown]
